FAERS Safety Report 17091823 (Version 1)
Quarter: 2019Q4

REPORT INFORMATION
  Report Type: Spontaneous
  Country: SE (occurrence: SE)
  Receive Date: 20191129
  Receipt Date: 20191129
  Transmission Date: 20200122
  Serious: Yes (Hospitalization)
  Sender: FDA-Public Use
  Company Number: SE-TEVA-2019-SE-1143595

PATIENT
  Age: 17 Year
  Sex: Female

DRUGS (4)
  1. FLUOXETINE [Suspect]
     Active Substance: FLUOXETINE HYDROCHLORIDE
     Dosage: ^MEDICINERAR VANLIGTVIS 20 MG SAKNAS 8 ST^
     Route: 065
     Dates: start: 20181022, end: 20181022
  2. IBUPROFEN. [Suspect]
     Active Substance: IBUPROFEN
     Dosage: 2400 MILLIGRAM
     Route: 065
     Dates: start: 20181022, end: 20181022
  3. PANODIL [Suspect]
     Active Substance: ACETAMINOPHEN
     Dates: start: 20181022, end: 20181022
  4. LERGIGAN (PROMETHAZINE HYDROCHLORIDE) [Suspect]
     Active Substance: PROMETHAZINE HYDROCHLORIDE
     Route: 048
     Dates: start: 20181022, end: 20181022

REACTIONS (5)
  - Somnolence [Unknown]
  - Intentional self-injury [Unknown]
  - Intentional overdose [Unknown]
  - Abdominal pain [Unknown]
  - Hypertension [Unknown]

NARRATIVE: CASE EVENT DATE: 20181022
